FAERS Safety Report 11260458 (Version 1)
Quarter: 2015Q3

REPORT INFORMATION
  Report Type: Spontaneous
  Country: US (occurrence: US)
  Receive Date: 20150710
  Receipt Date: 20150710
  Transmission Date: 20151125
  Serious: Yes (Other)
  Sender: FDA-Public Use
  Company Number: US-AMGEN-USASP2015064578

PATIENT
  Sex: Male

DRUGS (3)
  1. SENSIPAR [Suspect]
     Active Substance: CINACALCET HYDROCHLORIDE
     Indication: PRODUCT USED FOR UNKNOWN INDICATION
     Dosage: 30 MG, BID
     Route: 048
  2. OXYCONTIN [Concomitant]
     Active Substance: OXYCODONE HYDROCHLORIDE
     Indication: GROIN PAIN
  3. TRAMADOL. [Concomitant]
     Active Substance: TRAMADOL
     Indication: GROIN PAIN

REACTIONS (7)
  - Groin pain [Unknown]
  - Head discomfort [Recovering/Resolving]
  - Parathyroid tumour benign [Unknown]
  - Off label use [Unknown]
  - Fatigue [Recovering/Resolving]
  - Depression [Unknown]
  - Feeling hot [Unknown]

NARRATIVE: CASE EVENT DATE: 20150704
